FAERS Safety Report 20617629 (Version 1)
Quarter: 2022Q1

REPORT INFORMATION
  Report Type: Spontaneous
  Country: US (occurrence: US)
  Receive Date: 20220321
  Receipt Date: 20220321
  Transmission Date: 20220423
  Serious: No
  Sender: FDA-Public Use
  Company Number: US-Santen Inc-2022-USA-000874

PATIENT
  Age: 79 Year
  Sex: Female

DRUGS (3)
  1. FLAREX [Suspect]
     Active Substance: FLUOROMETHOLONE ACETATE
     Indication: Dry eye
     Route: 047
     Dates: start: 20210816
  2. IRBESARTAN [Concomitant]
     Active Substance: IRBESARTAN
     Indication: Product used for unknown indication
  3. SYSTANE (HYPROMELLOSE 2910 (4000 MPA.S)) [Concomitant]
     Active Substance: HYPROMELLOSE 2910 (4000 MPA.S)
     Indication: Product used for unknown indication

REACTIONS (4)
  - Off label use [Not Recovered/Not Resolved]
  - Product dose omission issue [Not Recovered/Not Resolved]
  - Product use complaint [Not Recovered/Not Resolved]
  - Product delivery mechanism issue [Not Recovered/Not Resolved]

NARRATIVE: CASE EVENT DATE: 20210101
